FAERS Safety Report 25774396 (Version 1)
Quarter: 2025Q3

REPORT INFORMATION
  Report Type: Spontaneous
  Country: EU (occurrence: EU)
  Receive Date: 20250908
  Receipt Date: 20250908
  Transmission Date: 20251021
  Serious: Yes (Other)
  Sender: MYLAN
  Company Number: EU-MYLANLABS-2025M1075739

PATIENT
  Sex: Male

DRUGS (3)
  1. TICAGRELOR [Suspect]
     Active Substance: TICAGRELOR
     Indication: Percutaneous coronary intervention
  2. CLOPIDOGREL [Suspect]
     Active Substance: CLOPIDOGREL BISULFATE
     Indication: Percutaneous coronary intervention
  3. ASPIRIN [Suspect]
     Active Substance: ASPIRIN
     Indication: Percutaneous coronary intervention

REACTIONS (3)
  - Gastrointestinal haemorrhage [Recovered/Resolved]
  - Melaena [Recovered/Resolved]
  - Iron deficiency anaemia [Unknown]
